FAERS Safety Report 7508409-4 (Version None)
Quarter: 2011Q2

REPORT INFORMATION
  Report Type: 
  Country: None (occurrence: None)
  Receive Date: 20110421
  Receipt Date: 20110414
  Transmission Date: 20111010
  Serious: Yes (Hospitalization, Other)
  Sender: FDA-Public Use
  Company Number: SPV1-2011-00080

PATIENT
  Age: 15 Month
  Sex: Female
  Weight: 0.5 kg

DRUGS (1)
  1. VYVANSE [Suspect]
     Dosage: 60 MG

REACTIONS (4)
  - AGITATION [None]
  - BLOOD PRESSURE INCREASED [None]
  - HALLUCINATION [None]
  - TACHYCARDIA [None]
